FAERS Safety Report 11782614 (Version 1)
Quarter: 2015Q4

REPORT INFORMATION
  Report Type: Report from Study
  Country: US (occurrence: US)
  Receive Date: 20151127
  Receipt Date: 20151127
  Transmission Date: 20160305
  Serious: Yes (Hospitalization)
  Sender: FDA-Public Use
  Company Number: US-ROCHE-1665078

PATIENT
  Age: 60 Year
  Sex: Female

DRUGS (9)
  1. BEVACIZUMAB [Suspect]
     Active Substance: BEVACIZUMAB
     Indication: OVARIAN CANCER
     Dosage: OVER 30-90 MIN ON DAY 1 (DATE OF LAST DOSE PRIOR TO SAE: 27/MAY/2010)
     Route: 042
     Dates: start: 20100323
  2. PACLITAXEL. [Suspect]
     Active Substance: PACLITAXEL
     Indication: OVARIAN CANCER
     Dosage: OVER 3 HRS ON DAY 1.
     Route: 042
     Dates: start: 20100323
  3. BEVACIZUMAB [Suspect]
     Active Substance: BEVACIZUMAB
     Indication: FALLOPIAN TUBE CANCER
  4. PACLITAXEL. [Suspect]
     Active Substance: PACLITAXEL
     Indication: MALIGNANT PERITONEAL NEOPLASM
     Dosage: ON DAY 8
     Route: 042
  5. CISPLATIN. [Suspect]
     Active Substance: CISPLATIN
     Indication: OVARIAN CANCER
  6. PACLITAXEL. [Suspect]
     Active Substance: PACLITAXEL
     Indication: FALLOPIAN TUBE CANCER
  7. CISPLATIN. [Suspect]
     Active Substance: CISPLATIN
     Indication: FALLOPIAN TUBE CANCER
     Dosage: ON DAY 2.
     Route: 033
     Dates: start: 20100323
  8. BEVACIZUMAB [Suspect]
     Active Substance: BEVACIZUMAB
     Indication: MALIGNANT PERITONEAL NEOPLASM
  9. CISPLATIN. [Suspect]
     Active Substance: CISPLATIN
     Indication: MALIGNANT PERITONEAL NEOPLASM

REACTIONS (4)
  - Nausea [Recovered/Resolved]
  - Blood creatinine increased [Recovered/Resolved]
  - Diarrhoea [Recovered/Resolved]
  - Vomiting [Recovered/Resolved]

NARRATIVE: CASE EVENT DATE: 20100614
